FAERS Safety Report 9297454 (Version 1)
Quarter: 2013Q2

REPORT INFORMATION
  Report Type: Spontaneous
  Country: US (occurrence: US)
  Receive Date: 20130520
  Receipt Date: 20130520
  Transmission Date: 20140414
  Serious: No
  Sender: FDA-Public Use
  Company Number: US-009507513-1305USA008345

PATIENT
  Sex: Female
  Weight: 56.69 kg

DRUGS (1)
  1. NUVARING [Suspect]
     Dosage: 1 UNK, UNK
     Route: 067
     Dates: start: 20130513

REACTIONS (3)
  - Drug dose omission [Unknown]
  - Product quality issue [Unknown]
  - No adverse event [Unknown]
